FAERS Safety Report 15093059 (Version 4)
Quarter: 2018Q3

REPORT INFORMATION
  Report Type: Spontaneous
  Country: US (occurrence: US)
  Receive Date: 20180629
  Receipt Date: 20180920
  Transmission Date: 20181010
  Serious: No
  Sender: FDA-Public Use
  Company Number: US-PFIZER INC-2018262520

PATIENT
  Age: 69 Year
  Sex: Male

DRUGS (6)
  1. SUTENT [Suspect]
     Active Substance: SUNITINIB MALATE
     Indication: RENAL CANCER
     Dosage: 50 MG, CYCLIC (EVERY DAY FOR 4 WEEKS ON THEN 2 WEEKS OFF, TAKE WHOLE WITH WATER)
     Route: 048
     Dates: start: 20180626
  2. CAT^S CLAW [Concomitant]
     Active Substance: CAT^S CLAW
     Dosage: 1000 MG, UNK
  3. STOMACH RELIEF [Concomitant]
     Active Substance: BISMUTH SUBSALICYLATE
     Dosage: UNK (SUS 527MG/30)
  4. ALFALFA [Concomitant]
     Active Substance: ALFALFA
     Dosage: 650 MG, UNK
  5. MAGNESIUM [Concomitant]
     Active Substance: MAGNESIUM
     Dosage: 500 MG, UNK
  6. LECITHIN [Concomitant]
     Active Substance: LECITHIN
     Dosage: UNK

REACTIONS (5)
  - Fatigue [Not Recovered/Not Resolved]
  - Nausea [Not Recovered/Not Resolved]
  - Oral mucosal blistering [Unknown]
  - Diarrhoea [Not Recovered/Not Resolved]
  - Pain in extremity [Unknown]

NARRATIVE: CASE EVENT DATE: 2018
